FAERS Safety Report 9360956 (Version 1)
Quarter: 2013Q2

REPORT INFORMATION
  Report Type: Spontaneous
  Country: US (occurrence: US)
  Receive Date: 20130621
  Receipt Date: 20130621
  Transmission Date: 20140414
  Serious: Yes (Other)
  Sender: FDA-Public Use
  Company Number: US-PFIZER INC-2013182618

PATIENT
  Age: 57 Year
  Sex: Male
  Weight: 137.42 kg

DRUGS (3)
  1. LYRICA [Suspect]
     Indication: FIBROMYALGIA
     Dosage: 100 MG, 3X/DAY
     Route: 048
     Dates: start: 2013, end: 201306
  2. LYRICA [Suspect]
     Dosage: 100 MG, 1X/DAY
     Route: 048
     Dates: start: 201306, end: 201306
  3. LYRICA [Suspect]
     Dosage: 100 MG, UNK
     Route: 048
     Dates: start: 201306

REACTIONS (7)
  - Weight increased [Unknown]
  - Swelling [Unknown]
  - Laboratory test abnormal [Unknown]
  - Oedema peripheral [Unknown]
  - Swelling face [Unknown]
  - Joint swelling [Unknown]
  - Headache [Unknown]
